FAERS Safety Report 15395442 (Version 1)
Quarter: 2018Q3

REPORT INFORMATION
  Report Type: Spontaneous
  Country: US (occurrence: US)
  Receive Date: 20180911
  Receipt Date: 20180911
  Transmission Date: 20181010
  Serious: Yes (Hospitalization, Other)
  Sender: FDA-Public Use
  Company Number: None

PATIENT
  Age: 33 Year
  Sex: Female
  Weight: 55.34 kg

DRUGS (1)
  1. MONSELS SOLUTION [Suspect]
     Active Substance: FERRIC SUBSULFATE
     Indication: URINARY TRACT INFECTION
     Dates: start: 20180904, end: 20180904

REACTIONS (12)
  - Muscle spasms [None]
  - Vaginal erosion [None]
  - Pain [None]
  - Vaginal odour [None]
  - Vulvovaginal swelling [None]
  - Vaginal discharge [None]
  - Application site burn [None]
  - Vulvovaginal burning sensation [None]
  - Recalled product [None]
  - Emotional distress [None]
  - Gait disturbance [None]
  - Vaginal exfoliation [None]
